FAERS Safety Report 25047041 (Version 1)
Quarter: 2025Q1

REPORT INFORMATION
  Report Type: Spontaneous
  Country: FR (occurrence: FR)
  Receive Date: 20250306
  Receipt Date: 20250306
  Transmission Date: 20250408
  Serious: Yes (Hospitalization)
  Sender: MERCK SHARP & DOHME LLC
  Company Number: None

PATIENT
  Age: 83 Year
  Sex: Female
  Weight: 77.3 kg

DRUGS (8)
  1. JANUMET [Suspect]
     Active Substance: METFORMIN HYDROCHLORIDE\SITAGLIPTIN PHOSPHATE
     Indication: Type 2 diabetes mellitus
     Route: 048
     Dates: start: 20241114, end: 20241220
  2. LETROZOLE [Concomitant]
     Active Substance: LETROZOLE
  3. ATARAX [Suspect]
     Active Substance: HYDROXYZINE HYDROCHLORIDE
     Route: 048
     Dates: start: 20241122, end: 20241216
  4. ELIQUIS 2.5 mg, film-coated tablet [Concomitant]
  5. OXAZEPAM [Concomitant]
     Active Substance: OXAZEPAM
  6. LEVOTHYROXINE SODIUM [Concomitant]
     Active Substance: LEVOTHYROXINE SODIUM
  7. TELMISARTAN [Concomitant]
     Active Substance: TELMISARTAN
  8. HYDROCHLOROTHIAZIDE [Concomitant]
     Active Substance: HYDROCHLOROTHIAZIDE

REACTIONS (1)
  - Erythema [Recovering/Resolving]

NARRATIVE: CASE EVENT DATE: 20241203
